FAERS Safety Report 10364307 (Version 7)
Quarter: 2015Q1

REPORT INFORMATION
  Report Type: Spontaneous
  Country: ES (occurrence: ES)
  Receive Date: 20140806
  Receipt Date: 20150226
  Transmission Date: 20150720
  Serious: Yes (Other)
  Sender: FDA-Public Use
  Company Number: ES-AMGEN-ESPSP2014037171

PATIENT
  Age: 63 Year
  Sex: Female

DRUGS (18)
  1. ENBREL [Suspect]
     Active Substance: ETANERCEPT
     Dosage: 50 MG, EVERY 10-12 DAYS
     Route: 065
  2. DOLALGIAL [Concomitant]
     Indication: PAIN
     Dosage: UNK UNK, AS NECESSARY
  3. ENBREL [Suspect]
     Active Substance: ETANERCEPT
     Dosage: 50 MG, EVERY 12-13 DAYS
     Route: 058
  4. ENBREL [Suspect]
     Active Substance: ETANERCEPT
     Dosage: UNK
     Route: 065
  5. ENBREL [Suspect]
     Active Substance: ETANERCEPT
     Dosage: 50 MG EVERY 9-10 DAYS
     Route: 058
  6. ENBREL [Suspect]
     Active Substance: ETANERCEPT
     Dosage: 50 MG, EVERY 8 OR 9 DAYS
     Route: 058
  7. ENBREL [Suspect]
     Active Substance: ETANERCEPT
     Dosage: UNK
     Route: 065
     Dates: start: 20150215
  8. FLUMIL                             /00082801/ [Concomitant]
     Indication: PRODUCTIVE COUGH
     Dosage: 1 DF, 1X/DAY
  9. KILOR [Concomitant]
     Indication: ANAEMIA
     Dosage: 1 DF, 1X/DAY
  10. MASTICAL [Concomitant]
     Dosage: 1 DF, 1X/DAY
  11. PLUSVENT [Concomitant]
     Active Substance: FLUTICASONE PROPIONATE\SALMETEROL XINAFOATE
     Indication: BRONCHIECTASIS
     Dosage: 1 DF, 2X/DAY
  12. BRAMITOB [Concomitant]
     Dosage: 1 DF, 2X/DAY ALTERNATE MONTHS
  13. ENBREL [Suspect]
     Active Substance: ETANERCEPT
     Indication: RHEUMATOID ARTHRITIS
     Dosage: 50 MG, WEEKLY
     Route: 058
     Dates: start: 20131225
  14. ENBREL [Suspect]
     Active Substance: ETANERCEPT
     Dosage: 50 MG EVERY 7 OR 9 DAYS
     Route: 058
  15. ENBREL [Suspect]
     Active Substance: ETANERCEPT
     Dosage: 50 MG, QWK
     Route: 065
     Dates: end: 2015
  16. BRAMITOB [Concomitant]
     Indication: BRONCHIECTASIS
     Dosage: UNK
  17. ZAMENE [Concomitant]
     Active Substance: DEFLAZACORT
     Indication: ARTHRITIS
     Dosage: UNK, AS NECESSARY
  18. ENBREL [Suspect]
     Active Substance: ETANERCEPT
     Dosage: 50 MG, EVERY 7 OR 8 DAYS
     Route: 058

REACTIONS (22)
  - Feeling abnormal [Unknown]
  - Gait disturbance [Not Recovered/Not Resolved]
  - Injection site erythema [Unknown]
  - Injection site inflammation [Unknown]
  - Injection site vesicles [Unknown]
  - Drug effect incomplete [Unknown]
  - Injection site pain [Unknown]
  - Feeling cold [Recovered/Resolved]
  - Malaise [Recovered/Resolved]
  - Arthralgia [Not Recovered/Not Resolved]
  - Condition aggravated [Unknown]
  - Injection site pruritus [Unknown]
  - Injection site induration [Unknown]
  - Injection site haematoma [Unknown]
  - Bronchiectasis [Not Recovered/Not Resolved]
  - Peripheral swelling [Unknown]
  - Pyrexia [Not Recovered/Not Resolved]
  - Nodule [Not Recovered/Not Resolved]
  - Injection site warmth [Unknown]
  - Injection site reaction [Unknown]
  - Nasopharyngitis [Unknown]
  - Influenza [Recovered/Resolved]

NARRATIVE: CASE EVENT DATE: 2014
